FAERS Safety Report 10153575 (Version 1)
Quarter: 2014Q2

REPORT INFORMATION
  Report Type: Spontaneous
  Country: US (occurrence: US)
  Receive Date: 20140505
  Receipt Date: 20140505
  Transmission Date: 20141212
  Serious: Yes (Hospitalization)
  Sender: FDA-Public Use
  Company Number: US-GILEAD-2014-0101271

PATIENT
  Sex: Female

DRUGS (7)
  1. LETAIRIS [Suspect]
     Indication: PULMONARY HYPERTENSION
     Dosage: 5 MG, QD
     Route: 065
     Dates: start: 20120703
  2. REVATIO [Concomitant]
  3. LEVOTHYROXINE [Concomitant]
  4. SPIRONOLACTONE [Concomitant]
  5. WARFARIN [Concomitant]
  6. BUMEX [Concomitant]
  7. ALBUTEROL                          /00139501/ [Concomitant]

REACTIONS (3)
  - Nasopharyngitis [Recovering/Resolving]
  - Asthenia [Not Recovered/Not Resolved]
  - Swelling [Recovering/Resolving]
